FAERS Safety Report 23666199 (Version 1)
Quarter: 2024Q1

REPORT INFORMATION
  Report Type: Spontaneous
  Country: JP (occurrence: JP)
  Receive Date: 20240324
  Receipt Date: 20240324
  Transmission Date: 20240410
  Serious: Yes (Other)
  Sender: FDA-Public Use
  Company Number: JP-STRIDES ARCOLAB LIMITED-2024SP003337

PATIENT
  Age: 3 Year
  Sex: Female

DRUGS (9)
  1. TACROLIMUS [Suspect]
     Active Substance: TACROLIMUS
     Indication: Prophylaxis against graft versus host disease
     Dosage: UNK
     Route: 065
  2. METHOTREXATE [Suspect]
     Active Substance: METHOTREXATE
     Indication: Prophylaxis against graft versus host disease
     Dosage: UNK (SHORT TERM USE)
     Route: 065
  3. PREDNISOLONE [Suspect]
     Active Substance: PREDNISOLONE
     Indication: Congenital aplastic anaemia
     Dosage: UNK
     Route: 065
  4. URSODIOL [Suspect]
     Active Substance: URSODIOL
     Indication: Prophylaxis
     Dosage: UNK
     Route: 065
  5. BUSULFAN [Suspect]
     Active Substance: BUSULFAN
     Indication: Bone marrow conditioning regimen
     Dosage: 13.5 MILLIGRAM/KILOGRAM (ADMINISTERED  OVER 3H ONCE A DAY ON DAYS-9-7)
     Route: 042
  6. FLUDARABINE [Suspect]
     Active Substance: FLUDARABINE PHOSPHATE
     Indication: Bone marrow conditioning regimen
     Dosage: 25 MILLIGRAM/SQ. METER (ON DAYS -5,-2) DAILY
     Route: 065
  7. CYCLOPHOSPHAMIDE [Suspect]
     Active Substance: CYCLOPHOSPHAMIDE
     Indication: Bone marrow conditioning regimen
     Dosage: 750 MILLIGRAM/SQ. METER (ON DAYS -5,-2) DAILY
     Route: 065
  8. LAPINE T-LYMPHOCYTE IMMUNE GLOBULIN [Suspect]
     Active Substance: LAPINE T-LYMPHOCYTE IMMUNE GLOBULIN
     Indication: Bone marrow conditioning regimen
     Dosage: 1.25 MILLIGRAM/KILOGRAM (ON DAYS -5,-2) DAILY
     Route: 065
  9. DALTEPARIN [Concomitant]
     Active Substance: DALTEPARIN
     Indication: Prophylaxis
     Dosage: UNK
     Route: 065

REACTIONS (3)
  - Acute graft versus host disease in skin [Unknown]
  - Drug ineffective [Unknown]
  - Off label use [Unknown]
